FAERS Safety Report 5706979-X (Version None)
Quarter: 2008Q2

REPORT INFORMATION
  Report Type: 
  Country: None (occurrence: None)
  Receive Date: 20080416
  Receipt Date: 20080403
  Transmission Date: 20081010
  Serious: Yes (Other)
  Sender: FDA-Public Use
  Company Number: DE-BAYER-200816162GPV

PATIENT
  Age: 58 Year
  Sex: Male

DRUGS (5)
  1. FLUDARABINE [Suspect]
     Indication: ACUTE MYELOID LEUKAEMIA
     Dosage: TOTAL DAILY DOSE: 30 MG/M2
     Route: 042
  2. CYTARABINE [Suspect]
     Indication: ACUTE MYELOID LEUKAEMIA
     Dosage: TOTAL DAILY DOSE: 2000 MG/M2
     Route: 065
  3. MITOXANTRONE [Suspect]
     Indication: ACUTE MYELOID LEUKAEMIA
     Dosage: AS USED: 7 MG/M2
  4. AMPHOTERICIN B [Concomitant]
     Indication: ANTIFUNGAL PROPHYLAXIS
  5. CIPROFLOXACIN [Concomitant]
     Indication: DRUG USE FOR UNKNOWN INDICATION
     Dates: start: 20050201

REACTIONS (6)
  - BACK PAIN [None]
  - CANDIDA OSTEOMYELITIS [None]
  - CANDIDA SEROLOGY POSITIVE [None]
  - INTERVERTEBRAL DISCITIS [None]
  - NEUTROPENIA [None]
  - PYREXIA [None]
